FAERS Safety Report 4524761-6 (Version None)
Quarter: 2004Q4

REPORT INFORMATION
  Report Type: 
  Country: None (occurrence: None)
  Receive Date: 20041213
  Receipt Date: 20041130
  Transmission Date: 20050328
  Serious: Yes (Hospitalization)
  Sender: FDA-Public Use
  Company Number: DE-BRISTOL-MYERS SQUIBB COMPANY-12779849

PATIENT
  Sex: Male
  Weight: 80 kg

DRUGS (18)
  1. CISPLATIN [Suspect]
     Indication: NON-SMALL CELL LUNG CANCER
     Route: 042
     Dates: start: 20031028, end: 20031028
  2. GEMCITABINE [Suspect]
     Indication: NON-SMALL CELL LUNG CANCER
     Route: 042
     Dates: start: 20031028, end: 20031028
  3. VINORELBINE [Suspect]
     Indication: NON-SMALL CELL LUNG CANCER
     Route: 042
     Dates: start: 20031028, end: 20031028
  4. PANTOPRAZOLE [Concomitant]
     Indication: PROPHYLAXIS
     Route: 048
     Dates: start: 20031001
  5. PLAVIX [Concomitant]
     Indication: CORONARY ARTERY DISEASE
     Route: 048
  6. XANEF [Concomitant]
     Indication: HYPERTENSION
     Route: 048
  7. XANEF [Concomitant]
     Indication: CORONARY ARTERY DISEASE
     Route: 048
  8. UNAT [Concomitant]
     Indication: HYPERTENSION
     Route: 048
  9. UNAT [Concomitant]
     Indication: CORONARY ARTERY DISEASE
     Route: 048
  10. BISOPROLOL FUMARATE [Concomitant]
     Indication: HYPERTENSION
     Route: 048
  11. BISOPROLOL FUMARATE [Concomitant]
     Indication: CORONARY ARTERY DISEASE
     Route: 048
  12. RYTMONORM [Concomitant]
     Indication: HYPERTENSION
     Route: 048
  13. RYTMONORM [Concomitant]
     Indication: CORONARY ARTERY DISEASE
     Route: 048
  14. THIAMAZOLE [Concomitant]
     Indication: HYPERTHYROIDISM
  15. DEXAMETHASONE [Concomitant]
     Indication: PREMEDICATION
     Dates: start: 20031028, end: 20031028
  16. ZOFRAN [Concomitant]
     Indication: PREMEDICATION
     Dates: start: 20031028, end: 20031028
  17. FENISTIL [Concomitant]
     Indication: PREMEDICATION
     Dates: start: 20031028, end: 20031028
  18. PANTOZOL [Concomitant]
     Indication: PREMEDICATION
     Dates: start: 20031028, end: 20031028

REACTIONS (5)
  - HYPOTENSION [None]
  - INFECTION [None]
  - ORTHOSTATIC HYPOTENSION [None]
  - PANCYTOPENIA [None]
  - SYNCOPE [None]
